FAERS Safety Report 7036984-5 (Version None)
Quarter: 2010Q4

REPORT INFORMATION
  Report Type: 
  Country: None (occurrence: None)
  Receive Date: 20101011
  Receipt Date: 20100930
  Transmission Date: 20110411
  Serious: Yes (Other)
  Sender: FDA-Public Use
  Company Number: DE-BRISTOL-MYERS SQUIBB COMPANY-15325905

PATIENT
  Age: 79 Year
  Sex: Male

DRUGS (1)
  1. MITOMYCIN [Suspect]
     Indication: BLADDER TRANSITIONAL CELL CARCINOMA RECURRENT
     Dosage: ROUTE:IB
     Route: 043

REACTIONS (2)
  - PALMAR-PLANTAR ERYTHRODYSAESTHESIA SYNDROME [None]
  - RASH [None]
